FAERS Safety Report 24256333 (Version 1)
Quarter: 2024Q3

REPORT INFORMATION
  Report Type: Spontaneous
  Country: IR (occurrence: IR)
  Receive Date: 20240828
  Receipt Date: 20240828
  Transmission Date: 20241016
  Serious: Yes (Death, Hospitalization)
  Sender: STRIDES
  Company Number: IR-STRIDES ARCOLAB LIMITED-2024SP010642

PATIENT
  Age: 33 Year
  Sex: Female

DRUGS (6)
  1. OMEPRAZOLE [Suspect]
     Active Substance: OMEPRAZOLE
     Indication: Peptic ulcer
     Dosage: UNK (INTERMITTENTLY)
     Route: 065
  2. PAZOPANIB [Suspect]
     Active Substance: PAZOPANIB
     Indication: Angiosarcoma
     Dosage: 200 MILLIGRAM (TWO TABLETS OF PAZOPANIB 200MG ON DAY 1)
     Route: 065
     Dates: start: 20221024
  3. PAZOPANIB [Suspect]
     Active Substance: PAZOPANIB
     Indication: Carcinoid tumour pulmonary
  4. PACLITAXEL [Suspect]
     Active Substance: PACLITAXEL
     Indication: Angiosarcoma
     Dosage: 120 MILLIGRAM/SQ. METER (FOUR INJECTIONS OF IV PACLITAXEL 120 MG/M2 DILUTED IN SODIUM CHLORIDE ON DA
     Route: 042
     Dates: start: 20221024
  5. PACLITAXEL [Suspect]
     Active Substance: PACLITAXEL
     Indication: Carcinoid tumour pulmonary
  6. SODIUM CHLORIDE [Suspect]
     Active Substance: SODIUM CHLORIDE
     Indication: Vehicle solution use
     Dosage: UNK (FOUR INJECTIONS OF PACLITAXEL DILUTED IN 500 CCS OF SODIUM CHLORIDE ON DAY 1, 8 AND 15)
     Route: 042
     Dates: start: 20221024

REACTIONS (3)
  - Multiple organ dysfunction syndrome [Fatal]
  - Infection [Fatal]
  - Drug ineffective for unapproved indication [Fatal]

NARRATIVE: CASE EVENT DATE: 20221111
